FAERS Safety Report 13952395 (Version 1)
Quarter: 2017Q3

REPORT INFORMATION
  Report Type: Spontaneous
  Country: US (occurrence: US)
  Receive Date: 20170911
  Receipt Date: 20170911
  Transmission Date: 20171128
  Serious: No
  Sender: FDA-Public Use
  Company Number: US-TEVA-722682ACC

PATIENT
  Sex: Female
  Weight: 82 kg

DRUGS (10)
  1. FENTANYL. [Suspect]
     Active Substance: FENTANYL
     Indication: PAIN
     Dosage: REPLACE EVERY 72HOURS
     Route: 065
     Dates: end: 201703
  2. WELLBUTRIN [Concomitant]
     Active Substance: BUPROPION HYDROCHLORIDE
  3. VITAMIN D [Concomitant]
     Active Substance: CHOLECALCIFEROL
  4. PANTOPRAZOLE [Concomitant]
     Active Substance: PANTOPRAZOLE
  5. CALCIUM [Concomitant]
     Active Substance: CALCIUM
  6. VITAMIN C [Concomitant]
     Active Substance: ASCORBIC ACID
     Dosage: 3-4 GRAMS
  7. CARVEDILOL. [Concomitant]
     Active Substance: CARVEDILOL
  8. XANAX [Concomitant]
     Active Substance: ALPRAZOLAM
  9. BUSPAR [Concomitant]
     Active Substance: BUSPIRONE HYDROCHLORIDE
  10. OXYCODONE [Concomitant]
     Active Substance: OXYCODONE

REACTIONS (6)
  - Product adhesion issue [Unknown]
  - Application site rash [Recovered/Resolved]
  - Hyperhidrosis [Recovered/Resolved]
  - Application site vesicles [Unknown]
  - Application site pain [Recovered/Resolved]
  - Anxiety [Recovered/Resolved]
